FAERS Safety Report 7174231-4 (Version None)
Quarter: 2010Q4

REPORT INFORMATION
  Report Type: 
  Country: None (occurrence: None)
  Receive Date: 20101202
  Receipt Date: 20101124
  Transmission Date: 20110411
  Serious: Yes (Hospitalization)
  Sender: FDA-Public Use
  Company Number: 2010SP061811

PATIENT
  Age: 54 Year
  Sex: Male

DRUGS (2)
  1. RIBAVIRIN [Suspect]
     Indication: HEPATIC CIRRHOSIS
  2. PEG-INTERFERON (PEGINTERFERON ALFA-2B /01543001/) [Suspect]
     Indication: HEPATIC CIRRHOSIS

REACTIONS (2)
  - BILE DUCT STENOSIS [None]
  - LIVER TRANSPLANT REJECTION [None]
